FAERS Safety Report 13176848 (Version 1)
Quarter: 2017Q1

REPORT INFORMATION
  Report Type: Spontaneous
  Country: US (occurrence: US)
  Receive Date: 20170201
  Receipt Date: 20170201
  Transmission Date: 20170428
  Serious: Yes (Hospitalization)
  Sender: FDA-Public Use
  Company Number: US-PFIZER INC-2016574285

PATIENT
  Age: 76 Year
  Sex: Male
  Weight: 81 kg

DRUGS (2)
  1. CHAPSTICK ULTRA SPF 30 [Suspect]
     Active Substance: OCTINOXATE\OCTISALATE\OCTOCRYLENE\OXYBENZONE\PETROLATUM
     Indication: LIP DRY
     Dosage: UNK, AS NEEDED, PUT ON LIPS EVERY TIME THEY FELT DRY
  2. CHAPSTICK ULTRA SPF 30 [Suspect]
     Active Substance: OCTINOXATE\OCTISALATE\OCTOCRYLENE\OXYBENZONE\PETROLATUM
     Indication: PROPHYLAXIS

REACTIONS (2)
  - Lip swelling [Recovered/Resolved]
  - Reaction to drug excipients [Recovered/Resolved]
